FAERS Safety Report 9016245 (Version 3)
Quarter: 2013Q1

REPORT INFORMATION
  Report Type: Spontaneous
  Country: US (occurrence: US)
  Receive Date: 20130116
  Receipt Date: 20130215
  Transmission Date: 20140127
  Serious: No
  Sender: FDA-Public Use
  Company Number: US-009507513-1301USA004749

PATIENT
  Sex: 0
  Weight: 72.34 kg

DRUGS (3)
  1. IMPLANON [Suspect]
     Dosage: 1 UNK, UNK
     Route: 059
     Dates: start: 20121127
  2. IMPLANON [Suspect]
     Dosage: 1 UNK, UNK
     Route: 059
     Dates: start: 20121127
  3. IMPLANON [Suspect]
     Dosage: 1 DF, UNK
     Route: 059
     Dates: start: 20121127

REACTIONS (3)
  - Device difficult to use [Unknown]
  - Product quality issue [Unknown]
  - No adverse event [Unknown]
